FAERS Safety Report 5763472-6 (Version None)
Quarter: 2008Q2

REPORT INFORMATION
  Report Type: 
  Country: None (occurrence: None)
  Receive Date: 20080529
  Receipt Date: 20071004
  Transmission Date: 20081010
  Serious: Yes (Other)
  Sender: FDA-Public Use
  Company Number: CIP07002009

PATIENT
  Age: 61 Year
  Sex: Female

DRUGS (21)
  1. ACTONEL [Suspect]
     Indication: OSTEOPOROSIS
     Dates: start: 20050110, end: 20060101
  2. FOSAMAX [Suspect]
     Indication: OSTEOPOROSIS
     Dosage: 70 MG, 1 /WEEK, ORAL
     Route: 048
     Dates: start: 20020514
  3. VIOXX [Concomitant]
  4. COVERA-HS [Concomitant]
  5. LIPITOR [Concomitant]
  6. CHEMDEC DM (PSEUDOEPHEDRINE HYDROCHLORIDE, DEXTROAMETHORPHAN HYDROBROM [Concomitant]
  7. CITALOPRAM HYDROBROMIDE [Concomitant]
  8. EFFEXOR [Concomitant]
  9. IBUPROFEN [Concomitant]
  10. IMDUR [Concomitant]
  11. LISINOPRIL [Concomitant]
  12. PAXIL [Concomitant]
  13. CELEBREX [Concomitant]
  14. QUININE SULFATE (QUININE SULFATE) [Concomitant]
  15. PRILOSEC [Concomitant]
  16. ZOCOR [Concomitant]
  17. VERELAN PM [Concomitant]
  18. ALTACE [Concomitant]
  19. CALTRATE + D (CALCIUM CARBONATE, COLECALCIFEROL) [Concomitant]
  20. MIDRIN (PARACETAMOL, ISOMETHEPTENE, DICHLORALPHENAZONE) [Concomitant]
  21. ADVAIR (SALMETEROL XINAFOATE, FLUTICASONE PROPIONATE) [Concomitant]

REACTIONS (16)
  - BONE DISORDER [None]
  - CONDITION AGGRAVATED [None]
  - DENTAL CARIES [None]
  - DENTAL DISCOMFORT [None]
  - EAR PAIN [None]
  - ERYTHEMA [None]
  - GINGIVAL RECESSION [None]
  - GINGIVITIS [None]
  - MOUTH ULCERATION [None]
  - OSTEONECROSIS [None]
  - PAIN IN JAW [None]
  - TOOTH ABSCESS [None]
  - TOOTH DISORDER [None]
  - TOOTH FRACTURE [None]
  - TOOTH LOSS [None]
  - WEIGHT DECREASED [None]
